FAERS Safety Report 23295497 (Version 1)
Quarter: 2023Q4

REPORT INFORMATION
  Report Type: Spontaneous
  Country: JP (occurrence: JP)
  Receive Date: 20231214
  Receipt Date: 20231214
  Transmission Date: 20240109
  Serious: Yes (Other)
  Sender: FDA-Public Use
  Company Number: JP-UCBJ-CD202312556UCBPHAPROD

PATIENT
  Age: 4 Year
  Sex: Female
  Weight: 15.4 kg

DRUGS (15)
  1. LEVETIRACETAM [Suspect]
     Active Substance: LEVETIRACETAM
     Indication: Tonic convulsion
     Dosage: 40 MILLIGRAM/KILOGRAM PER DAY
     Route: 048
  2. CARBAMAZEPINE [Concomitant]
     Active Substance: CARBAMAZEPINE
     Indication: Tonic convulsion
     Dosage: 10 MILLIGRAM/KILOGRAM PER DAY
  3. METHYLPREDNISOLONE [Concomitant]
     Active Substance: METHYLPREDNISOLONE
     Indication: Product used for unknown indication
     Dosage: 30 MILLIGRAM/KILOGRAM PER DAY
     Route: 041
  4. HUMAN IMMUNOGLOBULIN G [Concomitant]
     Active Substance: HUMAN IMMUNOGLOBULIN G
     Indication: Product used for unknown indication
     Dosage: 400 MILLIGRAM/KILOGRAM PER DAY
     Route: 041
  5. MIDAZOLAM [Concomitant]
     Active Substance: MIDAZOLAM
     Indication: Dyskinesia
     Dosage: UNK
     Route: 042
  6. MIDAZOLAM [Concomitant]
     Active Substance: MIDAZOLAM
     Indication: Epilepsy
  7. FOSPHENYTOIN SODIUM HEPTAHYDRATE [Concomitant]
     Active Substance: FOSPHENYTOIN SODIUM HEPTAHYDRATE
     Indication: Dyskinesia
     Dosage: UNK
     Route: 042
  8. FOSPHENYTOIN SODIUM HEPTAHYDRATE [Concomitant]
     Active Substance: FOSPHENYTOIN SODIUM HEPTAHYDRATE
     Indication: Epilepsy
  9. DEXMEDETOMIDINE [Concomitant]
     Active Substance: DEXMEDETOMIDINE
     Indication: Dyskinesia
     Dosage: UNK
     Route: 042
  10. DEXMEDETOMIDINE [Concomitant]
     Active Substance: DEXMEDETOMIDINE
     Indication: Epilepsy
  11. RITUXIMAB [Concomitant]
     Active Substance: RITUXIMAB
     Indication: Product used for unknown indication
     Dosage: 375 MILLIGRAM/SQ. METER PER WEEK
     Route: 042
  12. PREDNISOLONE [Concomitant]
     Active Substance: PREDNISOLONE
     Indication: Product used for unknown indication
     Dosage: 15 MILLIGRAM PER DAY
  13. PREDNISOLONE [Concomitant]
     Active Substance: PREDNISOLONE
     Dosage: 10 MILLIGRAM PER DAY
  14. DEXCHLORPHENIRAMINE MALEATE [Concomitant]
     Active Substance: DEXCHLORPHENIRAMINE MALEATE
     Indication: Prophylaxis
     Dosage: UNK
  15. HYDROCORTISONE [Concomitant]
     Active Substance: HYDROCORTISONE
     Indication: Prophylaxis
     Dosage: UNK

REACTIONS (4)
  - Cerebral atrophy [Unknown]
  - Anger [Unknown]
  - Speech disorder [Unknown]
  - Dyskinesia [Unknown]
